FAERS Safety Report 26009371 (Version 2)
Quarter: 2025Q4

REPORT INFORMATION
  Report Type: Spontaneous
  Country: US (occurrence: US)
  Receive Date: 20251107
  Receipt Date: 20251128
  Transmission Date: 20260117
  Serious: No
  Sender: BAUSCH AND LOMB
  Company Number: US-BAUSCHBL-2025BNL031233

PATIENT
  Age: 81 Year
  Sex: Female

DRUGS (1)
  1. LATANOPROST [Suspect]
     Active Substance: LATANOPROST
     Indication: Product used for unknown indication

REACTIONS (6)
  - Visual impairment [Unknown]
  - Eye disorder [Unknown]
  - Intentional dose omission [Unknown]
  - Product delivery mechanism issue [Unknown]
  - Extra dose administered [Unknown]
  - Product dispensing error [Unknown]
